FAERS Safety Report 21083863 (Version 1)
Quarter: 2022Q3

REPORT INFORMATION
  Report Type: Spontaneous
  Country: US (occurrence: None)
  Receive Date: 20220714
  Receipt Date: 20220714
  Transmission Date: 20221027
  Serious: Yes (Hospitalization)
  Sender: FDA-Public Use
  Company Number: None

PATIENT
  Sex: Male

DRUGS (7)
  1. ABIRATERONE [Suspect]
     Active Substance: ABIRATERONE
     Indication: Prostate cancer
     Route: 048
     Dates: start: 20210819
  2. ATORVASTATIN [Concomitant]
  3. COUNMAD IN [Concomitant]
  4. ELIGARD [Concomitant]
     Active Substance: LEUPROLIDE ACETATE
  5. FUROSEMIDE TAB [Concomitant]
  6. TAMSULOSIN [Concomitant]
     Active Substance: TAMSULOSIN
  7. VALSARTAN [Concomitant]
     Active Substance: VALSARTAN

REACTIONS (1)
  - Hospitalisation [None]
